FAERS Safety Report 20877858 (Version 1)
Quarter: 2022Q2

REPORT INFORMATION
  Report Type: Spontaneous
  Country: US (occurrence: US)
  Receive Date: 20220526
  Receipt Date: 20220526
  Transmission Date: 20220721
  Serious: Yes (Other)
  Sender: FDA-Public Use
  Company Number: US-BAUSCH-BL-2022-012342

PATIENT
  Sex: Female

DRUGS (2)
  1. LOTEMAX SM [Suspect]
     Active Substance: LOTEPREDNOL ETABONATE
     Indication: Corneal transplant
     Dosage: 1 DROP INTO EACH EYE AT BEDTIME.
     Route: 047
  2. LOTEMAX SM [Suspect]
     Active Substance: LOTEPREDNOL ETABONATE
     Indication: Product use in unapproved indication
     Dosage: 1 DROP INTO THE LEFT EYE EVERY 2 HOURS, 1 DROP INTO THE RIGHT EYE TWICE DAILY
     Route: 047

REACTIONS (2)
  - Corneal graft rejection [Unknown]
  - Product use in unapproved indication [Unknown]
